FAERS Safety Report 5805815-0 (Version None)
Quarter: 2008Q3

REPORT INFORMATION
  Report Type: 
  Country: None (occurrence: None)
  Receive Date: 20080708
  Receipt Date: 20080708
  Transmission Date: 20090109
  Serious: No
  Sender: FDA-Public Use
  Company Number: None

PATIENT
  Sex: Male

DRUGS (8)
  1. REVLIMID [Suspect]
     Indication: MULTIPLE MYELOMA
     Dosage: 25MG DAILY X21D/28D PO
     Route: 048
     Dates: start: 20080412, end: 20080606
  2. DEXAMETHASONE [Concomitant]
  3. ASPIRIN [Concomitant]
  4. LISINOPRIL [Concomitant]
  5. MORPHINE [Concomitant]
  6. QVAR 40 [Concomitant]
  7. K-TAB [Concomitant]
  8. IPRATROPIUM BROMIDE [Concomitant]

REACTIONS (7)
  - ARTHRALGIA [None]
  - CONDITION AGGRAVATED [None]
  - DISEASE PROGRESSION [None]
  - FATIGUE [None]
  - METASTASES TO BONE [None]
  - NEUROPATHY PERIPHERAL [None]
  - PLASMACYTOMA [None]
